FAERS Safety Report 8402643-7 (Version None)
Quarter: 2012Q2

REPORT INFORMATION
  Report Type: 
  Country: None (occurrence: None)
  Receive Date: 20120601
  Receipt Date: 20120518
  Transmission Date: 20120825
  Serious: Yes (Other)
  Sender: FDA-Public Use
  Company Number: GR-AMGEN-GRCSP2012032842

PATIENT
  Age: 69 Year
  Sex: Female

DRUGS (13)
  1. COLECALCIFEROL [Concomitant]
     Indication: OSTEOPOROSIS
     Dosage: UNK
     Route: 048
  2. RAMIPRIL [Concomitant]
     Indication: HYPERTENSION
     Dosage: UNK
     Route: 048
  3. ENBREL [Suspect]
     Indication: PSORIATIC ARTHROPATHY
     Dosage: 50 MG, WEEKLY
     Route: 058
     Dates: end: 20120516
  4. THYROHORMONE [Concomitant]
     Indication: THYROID DISORDER
     Dosage: UNK
     Route: 048
  5. AMLODIPINE BESYLATE AND VALSARTAN [Concomitant]
     Indication: HYPERTENSION
     Dosage: UNK
     Route: 048
  6. FLUOXETINE [Concomitant]
     Indication: DEPRESSION
     Dosage: UNK
     Route: 048
  7. GLUCOPHAGE [Concomitant]
     Indication: DIABETES MELLITUS
     Dosage: UNK
     Route: 048
  8. METHOTREXATE SODIUM [Suspect]
     Dosage: 12.5 MG, WEEKLY
     Route: 048
     Dates: end: 20120516
  9. LIPITOR [Concomitant]
     Indication: HYPERLIPIDAEMIA
     Dosage: UNK
     Route: 048
  10. CALCIUM CARBONATE [Concomitant]
     Indication: OSTEOPOROSIS
     Dosage: UNK
     Route: 048
  11. METHOTREXATE SODIUM [Suspect]
     Indication: PSORIATIC ARTHROPATHY
     Dosage: 12.5 MG, WEEKLY
     Route: 048
  12. ARCOXIA [Concomitant]
     Indication: PAIN
     Dosage: UNK
     Route: 048
  13. HYDROCHLOROTHIAZIDE [Concomitant]
     Indication: HYPERTENSION
     Dosage: UNK
     Route: 048

REACTIONS (1)
  - ANAL CANCER [None]
